FAERS Safety Report 5084412-1 (Version None)
Quarter: 2006Q3

REPORT INFORMATION
  Report Type: 
  Country: None (occurrence: None)
  Receive Date: 20060821
  Receipt Date: 20060607
  Transmission Date: 20061208
  Serious: Yes (Hospitalization)
  Sender: FDA-Public Use
  Company Number: US-GLAXOSMITHKLINE-A0608359A

PATIENT
  Age: 49 Year
  Sex: Female
  Weight: 80.9 kg

DRUGS (8)
  1. ADVAIR DISKUS 100/50 [Suspect]
     Indication: COUGH
     Dosage: 1PUFF TWICE PER DAY
     Route: 055
  2. ALBUTEROL [Suspect]
     Indication: DRUG USE FOR UNKNOWN INDICATION
     Route: 055
  3. XOPENEX [Concomitant]
  4. STEROID [Concomitant]
     Route: 048
  5. FLOVENT [Concomitant]
  6. SINGULAIR [Concomitant]
     Route: 048
  7. ZYRTEC [Concomitant]
     Route: 048
  8. ALUPENT [Concomitant]
     Indication: DRUG USE FOR UNKNOWN INDICATION
     Route: 055

REACTIONS (5)
  - ANGIONEUROTIC OEDEMA [None]
  - BRONCHOSPASM PARADOXICAL [None]
  - CHEST PAIN [None]
  - DYSPNOEA [None]
  - HYPERSENSITIVITY [None]
